FAERS Safety Report 17229275 (Version 1)
Quarter: 2020Q1

REPORT INFORMATION
  Report Type: Spontaneous
  Country: US (occurrence: US)
  Receive Date: 20200102
  Receipt Date: 20200102
  Transmission Date: 20200409
  Serious: Yes (Life-Threatening, Other)
  Sender: FDA-Public Use
  Company Number: None

PATIENT
  Age: 59 Year
  Weight: 135 kg

DRUGS (1)
  1. AZITHROMYCIN 500 MG IV IN 250 ML [Suspect]
     Active Substance: AZITHROMYCIN
     Route: 041
     Dates: start: 20191227, end: 20191228

REACTIONS (2)
  - Torsade de pointes [None]
  - Ventricular tachyarrhythmia [None]

NARRATIVE: CASE EVENT DATE: 20191228
